FAERS Safety Report 4475430-2 (Version None)
Quarter: 2004Q4

REPORT INFORMATION
  Report Type: 
  Country: None (occurrence: None)
  Receive Date: 20041014
  Receipt Date: 20041014
  Transmission Date: 20050328
  Serious: Yes (Life-Threatening, Hospitalization)
  Sender: FDA-Public Use
  Company Number: None

PATIENT
  Age: 74 Year
  Sex: Male

DRUGS (8)
  1. MYCOPHENOLATE [Suspect]
  2. LASIX [Concomitant]
  3. VERAPAMIL [Concomitant]
  4. EFFEXOR [Concomitant]
  5. COUMADIN [Concomitant]
  6. LIPITOR [Concomitant]
  7. VICODIN [Concomitant]
  8. PREVACID [Concomitant]

REACTIONS (1)
  - PERICARDITIS [None]
